FAERS Safety Report 13104636 (Version 2)
Quarter: 2017Q2

REPORT INFORMATION
  Report Type: Spontaneous
  Country: FR (occurrence: FR)
  Receive Date: 20170111
  Receipt Date: 20170515
  Transmission Date: 20170830
  Serious: Yes (Other)
  Sender: FDA-Public Use
  Company Number: FR-PFIZER INC-2017007731

PATIENT
  Age: 31 Year
  Sex: Female
  Weight: 45 kg

DRUGS (5)
  1. LEVETIRACETAM. [Suspect]
     Active Substance: LEVETIRACETAM
     Indication: GENERALISED NON-CONVULSIVE EPILEPSY
     Dosage: 750 MG PER 12 H
     Route: 042
  2. CLONAZEPAM. [Concomitant]
     Active Substance: CLONAZEPAM
     Dosage: 1 MG, UNK
  3. MORPHINE [Concomitant]
     Active Substance: MORPHINE
     Dosage: CONTINUOUS INTRAVENOUS INFUSION 44 H
     Route: 042
  4. CISATRACURIUM. [Concomitant]
     Active Substance: CISATRACURIUM
     Indication: THERAPEUTIC HYPOTHERMIA
     Dosage: CONTINUOUS INFUSION 6 H
     Route: 041
  5. MIDAZOLAM [Concomitant]
     Active Substance: MIDAZOLAM HYDROCHLORIDE
     Dosage: UNK (INTRAVENOUS INFUSION)
     Route: 042

REACTIONS (3)
  - Electroencephalogram abnormal [Recovering/Resolving]
  - Condition aggravated [Recovering/Resolving]
  - Overdose [Recovering/Resolving]
